FAERS Safety Report 6381061-X (Version None)
Quarter: 2009Q3

REPORT INFORMATION
  Report Type: 
  Country: None (occurrence: None)
  Receive Date: 20090924
  Receipt Date: 20090917
  Transmission Date: 20100115
  Serious: Yes (Other)
  Sender: FDA-Public Use
  Company Number: 2009SP025791

PATIENT
  Age: 4 Year
  Sex: Male

DRUGS (1)
  1. DESELEX (DESLORATADINE) (DESLORATADINE) [Suspect]
     Indication: DRUG USE FOR UNKNOWN INDICATION
     Dosage: PO
     Route: 048

REACTIONS (2)
  - BLADDER OBSTRUCTION [None]
  - MUSCLE SPASMS [None]
